FAERS Safety Report 22103698 (Version 1)
Quarter: 2023Q1

REPORT INFORMATION
  Report Type: Spontaneous
  Country: US (occurrence: US)
  Receive Date: 20230316
  Receipt Date: 20230316
  Transmission Date: 20230417
  Serious: No
  Sender: FDA-Public Use
  Company Number: US-AMGEN-USASP2023039639

PATIENT
  Sex: Female

DRUGS (1)
  1. NEULASTA [Suspect]
     Active Substance: PEGFILGRASTIM
     Indication: Prophylaxis
     Dosage: UNK (SUPPOSED TO GET INJECTION 27 HOURS AFTER TREATMENT)
     Route: 065

REACTIONS (2)
  - Device alarm issue [Unknown]
  - Device alarm issue [Unknown]
